FAERS Safety Report 6420579-8 (Version None)
Quarter: 2009Q4

REPORT INFORMATION
  Report Type: 
  Country: None (occurrence: None)
  Receive Date: 20091027
  Receipt Date: 20091013
  Transmission Date: 20100525
  Serious: Yes (Death, Other)
  Sender: FDA-Public Use
  Company Number: AUR-APL-2009-00904

PATIENT
  Age: 25 Year
  Sex: Male

DRUGS (6)
  1. SERTRALINE HCL [Suspect]
  2. METHADONE HCL [Suspect]
  3. LORAZEPAM [Suspect]
  4. BUSPIRONE HCL [Suspect]
  5. GUAIFENESIN [Suspect]
  6. MELATONIN [Suspect]

REACTIONS (11)
  - ACCIDENT [None]
  - BRAIN OEDEMA [None]
  - CARDIAC HYPERTROPHY [None]
  - DRUG ABUSE [None]
  - DRUG INTERACTION [None]
  - INCORRECT ROUTE OF DRUG ADMINISTRATION [None]
  - OVERDOSE [None]
  - PULMONARY GRANULOMA [None]
  - PULMONARY OEDEMA [None]
  - TOXICOLOGIC TEST ABNORMAL [None]
  - UNRESPONSIVE TO STIMULI [None]
